FAERS Safety Report 8181902-X (Version None)
Quarter: 2012Q1

REPORT INFORMATION
  Report Type: 
  Country: None (occurrence: None)
  Receive Date: 20120302
  Receipt Date: 20120222
  Transmission Date: 20120608
  Serious: Yes (Life-Threatening)
  Sender: FDA-Public Use
  Company Number: US-ROCHE-1043164

PATIENT
  Sex: Male
  Weight: 115.77 kg

DRUGS (2)
  1. CARBOPLATIN [Suspect]
     Indication: OESOPHAGEAL CARCINOMA
     Route: 042
     Dates: start: 20120213, end: 20120213
  2. XELODA [Suspect]
     Indication: OESOPHAGEAL CARCINOMA
     Route: 048
     Dates: start: 20120104, end: 20120213

REACTIONS (2)
  - CYANOSIS [None]
  - DYSPNOEA [None]
